FAERS Safety Report 15554209 (Version 2)
Quarter: 2019Q1

REPORT INFORMATION
  Report Type: Spontaneous
  Country: PR (occurrence: PR)
  Receive Date: 20181026
  Receipt Date: 20190314
  Transmission Date: 20190417
  Serious: No
  Sender: FDA-Public Use
  Company Number: PR-PFIZER INC-2018427912

PATIENT
  Age: 61 Year
  Sex: Male

DRUGS (4)
  1. TORISEL [Suspect]
     Active Substance: TEMSIROLIMUS
     Indication: METASTATIC RENAL CELL CARCINOMA
     Dosage: UNK UNK, WEEKLY
     Route: 042
     Dates: start: 201604, end: 201707
  2. SUTENT [Suspect]
     Active Substance: SUNITINIB MALATE
     Dosage: 25 UNK, UNK,(28 DAYS /2 WEEKS OFF, 25 MG /28 DAY)
     Dates: start: 201808
  3. SUTENT [Suspect]
     Active Substance: SUNITINIB MALATE
     Indication: METASTATIC RENAL CELL CARCINOMA
     Dosage: 50 MG, CYCLIC,(28 DAYS /2 WEEKS OFF, 50MG /28 DAY)
     Dates: start: 20180430, end: 20180528
  4. OPDIVO [Suspect]
     Active Substance: NIVOLUMAB
     Indication: METASTATIC RENAL CELL CARCINOMA
     Dosage: UNK [ONCE EVERY TWO WEEKS]
     Dates: start: 201709, end: 20180417

REACTIONS (1)
  - No adverse event [Unknown]
